FAERS Safety Report 14477306 (Version 1)
Quarter: 2018Q1

REPORT INFORMATION
  Report Type: Report from Study
  Country: US (occurrence: US)
  Receive Date: 20180201
  Receipt Date: 20180201
  Transmission Date: 20180509
  Serious: No
  Sender: FDA-Public Use
  Company Number: US-EXELIXIS-CABO-17010059

PATIENT
  Sex: Male

DRUGS (25)
  1. DIPHENOXYLATE/ATROPINE [Concomitant]
     Active Substance: ATROPINE\DIPHENOXYLATE
  2. FUROSEMIDE. [Concomitant]
     Active Substance: FUROSEMIDE
  3. SUTENT [Concomitant]
     Active Substance: SUNITINIB MALATE
  4. ACETAMINOPHEN. [Concomitant]
     Active Substance: ACETAMINOPHEN
  5. CABOMETYX [Suspect]
     Active Substance: CABOZANTINIB S-MALATE
     Indication: RENAL CANCER
     Dosage: 60 MG, QD
     Route: 048
     Dates: start: 20170311, end: 2017
  6. CABOMETYX [Suspect]
     Active Substance: CABOZANTINIB S-MALATE
     Dosage: 20 MG, QD
     Route: 048
     Dates: start: 2017
  7. PANTOPRAZOLE [Concomitant]
     Active Substance: PANTOPRAZOLE
  8. PROAIR HFA [Concomitant]
     Active Substance: ALBUTEROL SULFATE
  9. CYCLOBENZAPRIN [Concomitant]
     Active Substance: CYCLOBENZAPRINE
  10. ONDANSETRON [Concomitant]
     Active Substance: ONDANSETRON
  11. CLONIDINE. [Concomitant]
     Active Substance: CLONIDINE
  12. MEGASTROL [Concomitant]
  13. CETIRIZINE [Concomitant]
     Active Substance: CETIRIZINE HYDROCHLORIDE
  14. GABAPENTIN. [Concomitant]
     Active Substance: GABAPENTIN
  15. DRONABINOL. [Concomitant]
     Active Substance: DRONABINOL
  16. FERROUS SULFATE. [Concomitant]
     Active Substance: FERROUS SULFATE
  17. ASPIRIN. [Concomitant]
     Active Substance: ASPIRIN
  18. ATENOLOL. [Concomitant]
     Active Substance: ATENOLOL
  19. FINASTERIDE. [Concomitant]
     Active Substance: FINASTERIDE
  20. HYDROCODONE [Concomitant]
     Active Substance: HYDROCODONE
  21. TAMSULOSIN [Concomitant]
     Active Substance: TAMSULOSIN
  22. DIAZEPAM. [Concomitant]
     Active Substance: DIAZEPAM
  23. CABOMETYX [Suspect]
     Active Substance: CABOZANTINIB S-MALATE
     Dosage: 40 MG, QD
     Route: 048
     Dates: start: 20170805, end: 2017
  24. MORPHINE [Concomitant]
     Active Substance: MORPHINE
  25. PLAVIX [Concomitant]
     Active Substance: CLOPIDOGREL BISULFATE

REACTIONS (2)
  - Haemorrhage [Unknown]
  - Diarrhoea [Recovering/Resolving]
